FAERS Safety Report 6095607-2 (Version None)
Quarter: 2009Q1

REPORT INFORMATION
  Report Type: 
  Country: None (occurrence: None)
  Receive Date: 20090227
  Receipt Date: 20080515
  Transmission Date: 20090719
  Serious: No
  Sender: FDA-Public Use
  Company Number: A0726388A

PATIENT
  Age: 32 Year
  Sex: Male
  Weight: 77.3 kg

DRUGS (3)
  1. LAMICTAL [Suspect]
     Dosage: 50MG PER DAY
     Route: 048
     Dates: start: 20080407, end: 20080502
  2. PAXIL [Concomitant]
     Dosage: 20MG PER DAY
     Route: 048
     Dates: start: 20080401
  3. UNKNOWN [Concomitant]
     Dosage: 50MG PER DAY
     Dates: start: 20080401

REACTIONS (1)
  - RASH VESICULAR [None]
